FAERS Safety Report 8605094-5 (Version None)
Quarter: 2012Q3

REPORT INFORMATION
  Report Type: 
  Country: None (occurrence: None)
  Receive Date: 20120820
  Receipt Date: 20120810
  Transmission Date: 20120928
  Serious: Yes (Hospitalization, Other)
  Sender: FDA-Public Use
  Company Number: US-PFIZER INC-2012197102

PATIENT
  Age: 63 Year
  Sex: Male

DRUGS (1)
  1. PHENYTOIN [Suspect]
     Dosage: UNK

REACTIONS (4)
  - HYPERSENSITIVITY [None]
  - PYREXIA [None]
  - RASH [None]
  - RENAL FAILURE ACUTE [None]
